FAERS Safety Report 11635053 (Version 2)
Quarter: 2016Q4

REPORT INFORMATION
  Report Type: Spontaneous
  Country: US (occurrence: US)
  Receive Date: 20151015
  Receipt Date: 20161025
  Transmission Date: 20170206
  Serious: No
  Sender: FDA-Public Use
  Company Number: US-SA-2015SA088620

PATIENT
  Age: 51 Year
  Sex: Female
  Weight: 89.8 kg

DRUGS (15)
  1. BENADRYL [Concomitant]
     Active Substance: DIPHENHYDRAMINE HYDROCHLORIDE
     Indication: PREMEDICATION
     Route: 048
     Dates: start: 2008
  2. METROCREAM [Concomitant]
     Active Substance: METRONIDAZOLE
     Dosage: 0.75 % APPY TOPICALLY TO AFFECTED AREAS ONCE DAILY
     Dates: start: 20131108
  3. PROAIR HFA [Concomitant]
     Active Substance: ALBUTEROL SULFATE
     Dosage: /ACTUATION INHALER
     Route: 055
  4. ZOVIRAX [Concomitant]
     Active Substance: ACYCLOVIR
     Route: 055
     Dates: start: 20150328
  5. ATROVENT [Concomitant]
     Active Substance: IPRATROPIUM BROMIDE
     Dosage: INHALE 2 PUFFS INTO THE LUNGS EVERY 6 (SIX) HOURS. - INHALATION
     Route: 055
     Dates: start: 20140407
  6. MS CONTIN [Concomitant]
     Active Substance: MORPHINE SULFATE
     Route: 048
  7. PROCAINE [Concomitant]
     Active Substance: PROCAINE
     Dosage: 1000UNIT.ML SOLUTION
  8. VITAMIN D3 [Concomitant]
     Active Substance: CHOLECALCIFEROL
     Dosage: DOSE:100 UNIT(S)
     Route: 048
     Dates: start: 20131108
  9. ESTRADIOL. [Concomitant]
     Active Substance: ESTRADIOL
     Dates: start: 20140521
  10. MICRO-K [Concomitant]
     Active Substance: POTASSIUM CHLORIDE
     Dosage: 60 APMOULE
     Route: 048
     Dates: start: 20140805
  11. LUMIZYME [Suspect]
     Active Substance: ALGLUCOSIDASE ALFA
     Indication: GLYCOGEN STORAGE DISEASE TYPE II
     Dosage: 2400 OR 2500 MG
     Route: 041
     Dates: start: 20080201
  12. LASIX [Concomitant]
     Active Substance: FUROSEMIDE
     Dosage: TAKE 1-2 TABLETS (40-80 MG TOTAL) BY MOUTH DAILY
     Route: 048
  13. NEURONTIN [Concomitant]
     Active Substance: GABAPENTIN
     Route: 048
     Dates: start: 20150318
  14. EFFEXOR [Concomitant]
     Active Substance: VENLAFAXINE HYDROCHLORIDE
     Route: 048
     Dates: start: 20150331
  15. FLUTICASONE [Concomitant]
     Active Substance: FLUTICASONE\FLUTICASONE PROPIONATE
     Dosage: INHALE 2 PUFFS INTO THE LUNGS 2 (TWO) TIMES DAILY AS NEEDED. - INHALATION
     Route: 055

REACTIONS (2)
  - Pruritus [Recovered/Resolved]
  - Urticaria [Recovered/Resolved]

NARRATIVE: CASE EVENT DATE: 20150611
